FAERS Safety Report 19733410 (Version 1)
Quarter: 2021Q3

REPORT INFORMATION
  Report Type: Spontaneous
  Country: RO (occurrence: RO)
  Receive Date: 20210823
  Receipt Date: 20210823
  Transmission Date: 20211014
  Serious: Yes (Hospitalization)
  Sender: FDA-Public Use
  Company Number: RO-IPCA LABORATORIES LIMITED-IPC-2021-RO-001562

PATIENT

DRUGS (8)
  1. VINCRISTINE [Concomitant]
     Active Substance: VINCRISTINE
     Indication: MASS
  2. PROPRANOLOL [Suspect]
     Active Substance: PROPRANOLOL HYDROCHLORIDE
     Indication: VASCULAR MALFORMATION
     Dosage: 1 MILLIGRAM/KILOGRAM, QD
     Route: 065
  3. SIROLIMUS. [Suspect]
     Active Substance: SIROLIMUS
     Dosage: 1 MILLIGRAM/SQ. METER
     Route: 065
  4. METHYLPREDNISOLONE. [Concomitant]
     Active Substance: METHYLPREDNISOLONE
     Indication: MASS
     Dosage: 2 MILLIGRAM/KILOGRAM, QD
     Route: 065
  5. METHYLPREDNISOLONE. [Concomitant]
     Active Substance: METHYLPREDNISOLONE
     Indication: VASCULAR MALFORMATION
  6. VINCRISTINE [Concomitant]
     Active Substance: VINCRISTINE
     Indication: VASCULAR MALFORMATION
     Dosage: 0.05 MILLIGRAM/SQ. METER/WEEK
     Route: 065
  7. PROPRANOLOL [Suspect]
     Active Substance: PROPRANOLOL HYDROCHLORIDE
     Indication: MASS
  8. SIROLIMUS. [Suspect]
     Active Substance: SIROLIMUS
     Indication: VASCULAR MALFORMATION
     Dosage: 0.4 MILLIGRAM/SQ. METER
     Route: 065

REACTIONS (1)
  - Hypertriglyceridaemia [Unknown]
